FAERS Safety Report 26177486 (Version 1)
Quarter: 2025Q4

REPORT INFORMATION
  Report Type: Spontaneous
  Country: US (occurrence: US)
  Receive Date: 20251219
  Receipt Date: 20251219
  Transmission Date: 20260117
  Serious: Yes (Other)
  Sender: NOVARTIS
  Company Number: US-002147023-NVSC2025US192991

PATIENT
  Sex: Female

DRUGS (1)
  1. LEQVIO [Suspect]
     Active Substance: INCLISIRAN SODIUM
     Indication: Hypercholesterolaemia
     Dosage: 284 MG, ONCE/SINGLE
     Route: 058
     Dates: start: 20251211, end: 20251211

REACTIONS (4)
  - Feeling abnormal [Recovering/Resolving]
  - Pain [Unknown]
  - Neck pain [Unknown]
  - Somnolence [Unknown]

NARRATIVE: CASE EVENT DATE: 20251211
